FAERS Safety Report 9349587 (Version 5)
Quarter: 2013Q4

REPORT INFORMATION
  Report Type: Spontaneous
  Country: US (occurrence: US)
  Receive Date: 20130614
  Receipt Date: 20131029
  Transmission Date: 20140711
  Serious: Yes (Hospitalization, Disabling, Other)
  Sender: FDA-Public Use
  Company Number: US-AMGEN-USASP2013041759

PATIENT
  Age: 59 Year
  Sex: Female

DRUGS (5)
  1. PROLIA [Suspect]
     Indication: OSTEOPOROSIS POSTMENOPAUSAL
     Dosage: UNK
     Route: 065
  2. VITAMINS                           /00067501/ [Concomitant]
  3. VITAMIN D                          /00107901/ [Concomitant]
  4. XANAX [Concomitant]
  5. DONNATAL [Concomitant]

REACTIONS (38)
  - Pain in jaw [Unknown]
  - Oropharyngeal pain [Unknown]
  - Ventricular extrasystoles [Unknown]
  - Cardiac flutter [Unknown]
  - Chest discomfort [Unknown]
  - Arrhythmia [Unknown]
  - Angina pectoris [Unknown]
  - Suicidal ideation [Unknown]
  - Depression [Unknown]
  - Disability [Unknown]
  - Gastrointestinal disorder [Unknown]
  - Feeling abnormal [Unknown]
  - Malaise [Unknown]
  - Procedural pain [Unknown]
  - Nasopharyngitis [Not Recovered/Not Resolved]
  - Impaired healing [Not Recovered/Not Resolved]
  - Blood cholesterol increased [Unknown]
  - Vitamin D decreased [Unknown]
  - Renal pain [Recovering/Resolving]
  - Chromaturia [Unknown]
  - Hernia [Unknown]
  - Intestinal mass [Unknown]
  - Sleep disorder [Unknown]
  - Tremor [Unknown]
  - Migraine [Unknown]
  - Joint crepitation [Unknown]
  - Confusional state [Unknown]
  - Mental impairment [Unknown]
  - General physical health deterioration [Unknown]
  - Abdominal pain [Unknown]
  - Tinnitus [Unknown]
  - Fatigue [Unknown]
  - Asthenia [Unknown]
  - Pain [Unknown]
  - Palpitations [Unknown]
  - Quality of life decreased [Unknown]
  - Pain in extremity [Unknown]
  - Musculoskeletal pain [Unknown]
